FAERS Safety Report 8343890-2 (Version None)
Quarter: 2012Q2

REPORT INFORMATION
  Report Type: 
  Country: None (occurrence: None)
  Receive Date: 20120507
  Receipt Date: 20120424
  Transmission Date: 20120825
  Serious: Yes (Death)
  Sender: FDA-Public Use
  Company Number: SP05697

PATIENT
  Age: 58 Year
  Sex: Female

DRUGS (7)
  1. MAXALT [Concomitant]
  2. PROAIR HFA [Concomitant]
  3. XIFAXAN [Suspect]
     Dosage: 1100 MG (550 MG, 2 IN 1 D), ORAL
     Route: 048
     Dates: start: 20111201
  4. NOVOLOG [Concomitant]
  5. LEVAQUIN [Concomitant]
  6. CIPROFLOXACIN [Concomitant]
  7. DEXLANSOPRAZOLE [Concomitant]

REACTIONS (1)
  - DEATH [None]
